FAERS Safety Report 16441272 (Version 1)
Quarter: 2019Q2

REPORT INFORMATION
  Report Type: Other
  Country: None (occurrence: US)
  Receive Date: 20190617
  Receipt Date: 20190617
  Transmission Date: 20190711
  Serious: Yes (Hospitalization, Other)
  Sender: FDA-Public Use
  Company Number: US-SANTOS BIOTECH INDUSTRIES, INC.-2069267

PATIENT
  Age: 71 Year
  Sex: Female

DRUGS (1)
  1. ANASTROZOLE. [Suspect]
     Active Substance: ANASTROZOLE

REACTIONS (2)
  - Reversible cerebral vasoconstriction syndrome [None]
  - Subarachnoid haemorrhage [None]
